FAERS Safety Report 8133691-2 (Version None)
Quarter: 2012Q1

REPORT INFORMATION
  Report Type: 
  Country: None (occurrence: None)
  Receive Date: 20120213
  Receipt Date: 20120203
  Transmission Date: 20120608
  Serious: Yes (Other)
  Sender: FDA-Public Use
  Company Number: DE-ELI_LILLY_AND_COMPANY-DE201112006226

PATIENT
  Age: 55 Year
  Sex: Female

DRUGS (6)
  1. METFORMIN HCL [Concomitant]
     Dosage: 1000 MG, BID
     Dates: start: 20111001
  2. ENALAPRIL MALEATE [Concomitant]
  3. METFORMIN HCL [Concomitant]
     Dosage: 1000 MG, BID
     Dates: end: 20110901
  4. BYETTA [Suspect]
     Indication: TYPE 2 DIABETES MELLITUS
     Dosage: UNK
     Route: 058
     Dates: start: 20100701
  5. SERTRALINE HYDROCHLORIDE [Concomitant]
     Dosage: 1000 MG, UNKNOWN
  6. ESTRIFAM [Concomitant]

REACTIONS (3)
  - DEAFNESS BILATERAL [None]
  - OTOSCLEROSIS [None]
  - GLYCOSYLATED HAEMOGLOBIN INCREASED [None]
